FAERS Safety Report 6681059-8 (Version None)
Quarter: 2010Q2

REPORT INFORMATION
  Report Type: 
  Country: None (occurrence: None)
  Receive Date: 20100414
  Receipt Date: 20100402
  Transmission Date: 20101027
  Serious: Yes (Hospitalization)
  Sender: FDA-Public Use
  Company Number: JP-ROCHE-679088

PATIENT
  Sex: Female

DRUGS (5)
  1. PEGASYS [Suspect]
     Indication: HEPATITIS C
     Route: 058
     Dates: start: 20070425, end: 20080903
  2. PEGASYS [Suspect]
     Route: 058
     Dates: start: 20090128, end: 20090505
  3. PEGASYS [Suspect]
     Route: 058
     Dates: start: 20090513, end: 20091014
  4. COPEGUS [Suspect]
     Indication: HEPATITIS C
     Route: 048
     Dates: start: 20070402, end: 20080903
  5. COPEGUS [Suspect]
     Route: 048
     Dates: start: 20090128, end: 20090505

REACTIONS (1)
  - INFECTIVE SPONDYLITIS [None]
